FAERS Safety Report 13690292 (Version 1)
Quarter: 2017Q2

REPORT INFORMATION
  Report Type: Spontaneous
  Country: SE (occurrence: SE)
  Receive Date: 20170626
  Receipt Date: 20170626
  Transmission Date: 20170830
  Serious: Yes (Other)
  Sender: FDA-Public Use
  Company Number: SE-PFIZER INC-2017272193

PATIENT
  Age: 84 Year
  Sex: Male

DRUGS (17)
  1. INNOHEP [Concomitant]
     Active Substance: TINZAPARIN SODIUM
     Dates: start: 20170613
  2. GLUCOSE [Concomitant]
     Active Substance: DEXTROSE
     Dates: start: 20170614
  3. FURIX [Concomitant]
     Active Substance: FUROSEMIDE
     Dates: start: 20170615, end: 20170616
  4. ADSOL [Concomitant]
     Dates: start: 20170614, end: 20170617
  5. EKVACILLIN [Concomitant]
     Active Substance: CLOXACILLIN SODIUM
     Dates: start: 20170614
  6. KONAKION [Concomitant]
     Active Substance: PHYTONADIONE
     Dates: start: 20170614, end: 20170614
  7. OCPLEX [Concomitant]
     Dates: start: 20170614, end: 20170614
  8. FENTANYL. [Concomitant]
     Active Substance: FENTANYL
     Dates: start: 20170614, end: 20170614
  9. ALBUMIN [Concomitant]
     Active Substance: ALBUMIN HUMAN
     Dates: start: 20170614, end: 20170617
  10. CALCIUMGLUCONAT [Concomitant]
     Dates: start: 20170614, end: 20170616
  11. RINGER-ACETAT [Concomitant]
     Dates: start: 20170614
  12. CYKLOKAPRON [Suspect]
     Active Substance: TRANEXAMIC ACID
     Indication: POST PROCEDURAL HAEMORRHAGE
     Dosage: 1 G, 6 TIMES DAILY
     Route: 042
     Dates: start: 20170614, end: 20170617
  13. ESOMEPRAZOLE [Concomitant]
     Active Substance: ESOMEPRAZOLE
     Dates: start: 20170616
  14. NOREPINEPHRINE. [Concomitant]
     Active Substance: NOREPINEPHRINE
     Dates: start: 20170614, end: 20170615
  15. PROPOFOL. [Concomitant]
     Active Substance: PROPOFOL
     Dates: start: 20170614, end: 20170615
  16. DESMOPRESSIN [Concomitant]
     Active Substance: DESMOPRESSIN
     Dates: start: 20170614, end: 20170614
  17. NACL [Concomitant]
     Active Substance: SODIUM CHLORIDE
     Dates: start: 20170614

REACTIONS (1)
  - Myoclonus [Recovered/Resolved]

NARRATIVE: CASE EVENT DATE: 20170616
